FAERS Safety Report 8036880-0 (Version None)
Quarter: 2012Q1

REPORT INFORMATION
  Report Type: 
  Country: None (occurrence: None)
  Receive Date: 20120111
  Receipt Date: 20120105
  Transmission Date: 20120608
  Serious: No
  Sender: FDA-Public Use
  Company Number: US-PFIZER INC-2011088117

PATIENT
  Sex: Female
  Weight: 58.957 kg

DRUGS (8)
  1. PREMARIN [Concomitant]
     Indication: MENOPAUSE
     Dosage: UNK
  2. REVATIO [Suspect]
     Indication: SCLERODERMA
     Dosage: 20 MG, 3X/DAY
     Route: 048
     Dates: start: 20101227
  3. MULTI-VITAMINS [Concomitant]
     Dosage: UNK
  4. NIFEDIPINE [Concomitant]
     Indication: ATRIAL FIBRILLATION
     Dosage: 90 MG, 1X/DAY
  5. REVATIO [Suspect]
     Indication: ATRIAL FIBRILLATION
     Dosage: UNK
  6. REVATIO [Suspect]
     Indication: LOCALISED INFECTION
  7. OMEPRAZOLE [Concomitant]
     Indication: DYSPEPSIA
     Dosage: 20 MG, 1X/DAY
  8. VIACTIV /CAN/ [Concomitant]
     Dosage: UNK

REACTIONS (4)
  - DRUG DOSE OMISSION [None]
  - DIARRHOEA [None]
  - MALAISE [None]
  - TREATMENT NONCOMPLIANCE [None]
